FAERS Safety Report 6910723-8 (Version None)
Quarter: 2010Q3

REPORT INFORMATION
  Report Type: 
  Country: None (occurrence: None)
  Receive Date: 20100806
  Receipt Date: 20100729
  Transmission Date: 20110219
  Serious: Yes (Other)
  Sender: FDA-Public Use
  Company Number: JP-ROCHE-718431

PATIENT

DRUGS (1)
  1. PEGASYS [Suspect]
     Route: 058
     Dates: start: 20100426, end: 20100510

REACTIONS (1)
  - LICHEN PLANUS [None]
